FAERS Safety Report 20207882 (Version 1)
Quarter: 2021Q4

REPORT INFORMATION
  Report Type: Spontaneous
  Country: US (occurrence: None)
  Receive Date: 20211220
  Receipt Date: 20211220
  Transmission Date: 20220303
  Serious: Yes (Hospitalization)
  Sender: FDA-Public Use
  Company Number: None

PATIENT
  Age: 68 Year
  Sex: Male
  Weight: 78.75 kg

DRUGS (3)
  1. ROSUVASTATIN CALCIUM [Suspect]
     Active Substance: ROSUVASTATIN CALCIUM
     Indication: Hypercholesterolaemia
     Dosage: FREQUENCY : DAILY;?
     Route: 048
     Dates: start: 20201201, end: 20211220
  2. SOTALOL [Concomitant]
     Active Substance: SOTALOL
     Dates: start: 20211011
  3. ELIQUIS [Concomitant]
     Active Substance: APIXABAN
     Dates: start: 20200404

REACTIONS (2)
  - Pericarditis [None]
  - Pleural effusion [None]

NARRATIVE: CASE EVENT DATE: 20211110
